FAERS Safety Report 6976965-0 (Version None)
Quarter: 2010Q3

REPORT INFORMATION
  Report Type: 
  Country: None (occurrence: None)
  Receive Date: 20100910
  Receipt Date: 20100903
  Transmission Date: 20110219
  Serious: Yes (Other)
  Sender: FDA-Public Use
  Company Number: BR-ROCHE-700438

PATIENT
  Sex: Male
  Weight: 78 kg

DRUGS (4)
  1. ROACUTAN [Suspect]
     Indication: ACNE
     Route: 048
     Dates: start: 20080801
  2. ROACUTAN [Suspect]
     Route: 048
     Dates: start: 20080901, end: 20090501
  3. ROACUTAN [Suspect]
     Route: 048
     Dates: start: 20100811
  4. ADACNE CLIN [Concomitant]
     Dates: start: 20080101

REACTIONS (13)
  - ACNE [None]
  - ALANINE AMINOTRANSFERASE INCREASED [None]
  - ASPARTATE AMINOTRANSFERASE INCREASED [None]
  - BILIRUBIN CONJUGATED INCREASED [None]
  - BLOOD BILIRUBIN INCREASED [None]
  - BLOOD CHOLESTEROL INCREASED [None]
  - BLOOD TEST ABNORMAL [None]
  - INVESTIGATION ABNORMAL [None]
  - JOINT INJURY [None]
  - PHIMOSIS [None]
  - PROSTATIC DISORDER [None]
  - URINARY TRACT INFECTION [None]
  - WEIGHT INCREASED [None]
